FAERS Safety Report 8426256-6 (Version None)
Quarter: 2012Q2

REPORT INFORMATION
  Report Type: 
  Country: None (occurrence: None)
  Receive Date: 20120611
  Receipt Date: 20120601
  Transmission Date: 20120825
  Serious: Yes (Hospitalization)
  Sender: FDA-Public Use
  Company Number: US-ABBOTT-12P-163-0941581-00

PATIENT
  Sex: Male
  Weight: 154.36 kg

DRUGS (4)
  1. FOLIC ACID [Concomitant]
     Indication: PRODUCT USED FOR UNKNOWN INDICATION
  2. HUMIRA [Suspect]
     Indication: PSORIATIC ARTHROPATHY
     Dosage: RECEIVED ONLY TWO DOSES
  3. METHOTREXATE [Concomitant]
     Indication: PSORIATIC ARTHROPATHY
  4. CHEMOTHERAPEUTICS [Suspect]
     Indication: BRAIN NEOPLASM MALIGNANT
     Route: 048

REACTIONS (6)
  - NAUSEA [None]
  - HEADACHE [None]
  - OLIGODENDROGLIOMA [None]
  - BRAIN OEDEMA [None]
  - IMMUNOSUPPRESSION [None]
  - SKULL FRACTURE [None]
